FAERS Safety Report 12176982 (Version 3)
Quarter: 2016Q3

REPORT INFORMATION
  Report Type: Spontaneous
  Country: IT (occurrence: IT)
  Receive Date: 20160314
  Receipt Date: 20160728
  Transmission Date: 20161109
  Serious: Yes (Hospitalization, Other)
  Sender: FDA-Public Use
  Company Number: IT-BRISTOL-MYERS SQUIBB COMPANY-BMS-2016-016499

PATIENT
  Age: 50 Year
  Sex: Female
  Weight: 43 kg

DRUGS (3)
  1. ORENCIA [Suspect]
     Active Substance: ABATACEPT
     Indication: RHEUMATOID ARTHRITIS
     Dosage: 125 MG, QWK
     Route: 058
     Dates: start: 20140901, end: 20160201
  2. MEDROL [Suspect]
     Active Substance: METHYLPREDNISOLONE
     Indication: RHEUMATOID ARTHRITIS
     Dosage: 4 MG, UNK
     Route: 048
  3. LEFLUNOMIDE. [Suspect]
     Active Substance: LEFLUNOMIDE
     Indication: RHEUMATOID ARTHRITIS
     Dosage: 20 MG, UNK
     Route: 065
     Dates: start: 2014

REACTIONS (5)
  - Blindness unilateral [Recovered/Resolved with Sequelae]
  - Eye operation [Unknown]
  - Eye abscess [Recovered/Resolved with Sequelae]
  - Acute sinusitis [Recovered/Resolved with Sequelae]
  - Abscess drainage [Unknown]

NARRATIVE: CASE EVENT DATE: 20160203
